FAERS Safety Report 17914619 (Version 1)
Quarter: 2020Q2

REPORT INFORMATION
  Report Type: Spontaneous
  Country: IT (occurrence: IT)
  Receive Date: 20200618
  Receipt Date: 20200618
  Transmission Date: 20200714
  Serious: Yes (Hospitalization)
  Sender: FDA-Public Use
  Company Number: NVSC2020IT169271

PATIENT
  Age: 23 Year
  Sex: Male

DRUGS (4)
  1. RISPERDAL [Concomitant]
     Active Substance: RISPERIDONE
     Indication: MITOCHONDRIAL ENCEPHALOMYOPATHY
     Dosage: 0.75 MG
     Route: 048
  2. BENEXOL [Concomitant]
     Active Substance: CYANOCOBALAMIN\PYRIDOXINE\THIAMINE
     Indication: MITOCHONDRIAL ENCEPHALOMYOPATHY
     Dosage: 1 DF
     Route: 048
  3. FOLINA [Concomitant]
     Indication: MITOCHONDRIAL ENCEPHALOMYOPATHY
     Dosage: 5 MG
     Route: 048
  4. TEGRETOL [Suspect]
     Active Substance: CARBAMAZEPINE
     Indication: MITOCHONDRIAL ENCEPHALOMYOPATHY
     Dosage: 1 DF, QD
     Route: 048

REACTIONS (1)
  - Epilepsy [Recovering/Resolving]

NARRATIVE: CASE EVENT DATE: 20200116
